FAERS Safety Report 16500400 (Version 2)
Quarter: 2019Q3

REPORT INFORMATION
  Report Type: Spontaneous
  Country: US (occurrence: US)
  Receive Date: 20190701
  Receipt Date: 20190807
  Transmission Date: 20191004
  Serious: Yes (Hospitalization, Other)
  Sender: FDA-Public Use
  Company Number: US-GLENMARK PHARMACEUTICALS-2019GMK041882

PATIENT

DRUGS (1)
  1. NORETHINDRONE ACETATE AND ETHINYL ESTRADIOL TABLETS USP, 1MG/0.02 MG [Suspect]
     Active Substance: ETHINYL ESTRADIOL\NORETHINDRONE ACETATE
     Indication: ORAL CONTRACEPTION
     Dosage: 1 DF, OD
     Route: 048
     Dates: start: 2015, end: 2016

REACTIONS (7)
  - Chest discomfort [Unknown]
  - Myocardial infarction [Not Recovered/Not Resolved]
  - Pericarditis [Unknown]
  - Thoracic cavity drainage [Unknown]
  - Dyspnoea [Unknown]
  - Pericardial effusion [Unknown]
  - Chest pain [Unknown]

NARRATIVE: CASE EVENT DATE: 201508
